FAERS Safety Report 12407571 (Version 3)
Quarter: 2016Q3

REPORT INFORMATION
  Report Type: Report from Study
  Country: CA (occurrence: CA)
  Receive Date: 20160526
  Receipt Date: 20160811
  Transmission Date: 20161109
  Serious: Yes (Other)
  Sender: FDA-Public Use
  Company Number: PHHY2016CA052732

PATIENT
  Age: 74 Year
  Sex: Female

DRUGS (4)
  1. AFINITOR [Suspect]
     Active Substance: EVEROLIMUS
     Indication: BREAST CANCER
     Dosage: 10 MG, QD
     Route: 048
     Dates: start: 201310, end: 2015
  2. AFINITOR [Suspect]
     Active Substance: EVEROLIMUS
     Dosage: 7.5 MG, QD
     Route: 048
  3. AFINITOR [Suspect]
     Active Substance: EVEROLIMUS
     Dosage: 5 MG, QD
     Route: 048
     Dates: start: 20160419
  4. EXEMESTANE. [Concomitant]
     Active Substance: EXEMESTANE
     Indication: PRODUCT USED FOR UNKNOWN INDICATION
     Route: 005

REACTIONS (20)
  - Peripheral swelling [Recovering/Resolving]
  - Influenza [Recovering/Resolving]
  - Drug ineffective [Unknown]
  - Aphonia [Unknown]
  - Dysgeusia [Unknown]
  - Facial paralysis [Unknown]
  - Metastases to lymph nodes [Unknown]
  - Metastases to central nervous system [Unknown]
  - Speech disorder [Unknown]
  - Secretion discharge [Recovered/Resolved]
  - Malignant neoplasm progression [Unknown]
  - Lymphoedema [Unknown]
  - Facial nerve disorder [Unknown]
  - Weight decreased [Unknown]
  - Fatigue [Unknown]
  - Nasopharyngitis [Unknown]
  - Nerve compression [Unknown]
  - Breast cancer recurrent [Unknown]
  - Eating disorder [Unknown]
  - Haemoglobin decreased [Unknown]

NARRATIVE: CASE EVENT DATE: 201511
